FAERS Safety Report 9735146 (Version 1)
Quarter: 2013Q4

REPORT INFORMATION
  Report Type: Spontaneous
  Country: JP (occurrence: None)
  Receive Date: 20131204
  Receipt Date: 20131204
  Transmission Date: 20140711
  Serious: Yes (Hospitalization)
  Sender: FDA-Public Use
  Company Number: JP-ZYDUS-002451

PATIENT
  Sex: Female

DRUGS (1)
  1. LOSARTAN (LOSARTAN) [Suspect]
     Indication: HYPERTENSION
     Dosage: 50.00-MG-1.0DAYS

REACTIONS (2)
  - Liver injury [None]
  - Dermatomyositis [None]
